FAERS Safety Report 8769226 (Version 1)
Quarter: 2012Q4

REPORT INFORMATION
  Report Type: 
  Country: US (occurrence: US)
  Receive Date: 20120904
  Receipt Date: 20120904
  Transmission Date: 20130627
  Serious: No
  Sender: FDA-Public Use
  Company Number: US-AMGEN-USASP2012048258

PATIENT
  Age: 34 Year
  Sex: Female
  Weight: 63.49 kg

DRUGS (3)
  1. ENBREL [Suspect]
     Indication: PSORIASIS
     Dosage: 50 UNK, q2wk
     Route: 058
     Dates: start: 201205, end: 201208
  2. CLOBETASOL [Concomitant]
     Indication: PSORIASIS
     Dosage: PRN
     Route: 061
     Dates: start: 2004
  3. DERMA-SMOOTHE-FS [Concomitant]
     Indication: PSORIASIS
     Dosage: PRN
     Route: 061
     Dates: start: 2004

REACTIONS (1)
  - Palpitations [Recovered/Resolved]
